FAERS Safety Report 7488572-4 (Version None)
Quarter: 2011Q2

REPORT INFORMATION
  Report Type: 
  Country: None (occurrence: None)
  Receive Date: 20110518
  Receipt Date: 20110411
  Transmission Date: 20111010
  Serious: Yes (Life-Threatening, Hospitalization, Other)
  Sender: FDA-Public Use
  Company Number: US-BAYER-2011-013512

PATIENT
  Age: 24 Year
  Sex: Female
  Weight: 68.027 kg

DRUGS (1)
  1. YASMIN [Suspect]
     Indication: CONTRACEPTION
     Dosage: UNK
     Dates: start: 20040401, end: 20081201

REACTIONS (6)
  - ANXIETY [None]
  - PAIN [None]
  - CHOLECYSTITIS [None]
  - CHOLELITHIASIS [None]
  - BILE DUCT STONE [None]
  - LIVER DISORDER [None]
